FAERS Safety Report 7137554-0 (Version None)
Quarter: 2010Q4

REPORT INFORMATION
  Report Type: 
  Country: None (occurrence: None)
  Receive Date: 20101206
  Receipt Date: 20101123
  Transmission Date: 20110411
  Serious: Yes (Hospitalization)
  Sender: FDA-Public Use
  Company Number: US-ELI_LILLY_AND_COMPANY-US201011006492

PATIENT
  Age: 56 Year
  Sex: Male

DRUGS (9)
  1. CYMBALTA [Suspect]
     Indication: DEPRESSION
     Dosage: 60 MG, DAILY (1/D)
     Dates: end: 20101118
  2. CLONAZEPAM [Concomitant]
  3. VITAMIN B-12 [Concomitant]
  4. NEXIUM [Concomitant]
  5. NEURONTIN [Concomitant]
  6. LEVOTHYROXINE SODIUM [Concomitant]
  7. METOPROLOL SUCCINATE [Concomitant]
  8. ZOFRAN [Concomitant]
  9. VENLAFAXINE [Concomitant]

REACTIONS (2)
  - GASTRIC BYPASS [None]
  - OESOPHAGOGASTRIC FUNDOPLASTY [None]
